FAERS Safety Report 19810568 (Version 2)
Quarter: 2021Q3

REPORT INFORMATION
  Report Type: Report from Study
  Country: GB (occurrence: GB)
  Receive Date: 20210909
  Receipt Date: 20210922
  Transmission Date: 20211014
  Serious: Yes (Death, Hospitalization)
  Sender: FDA-Public Use
  Company Number: GB-ACCORD-218059

PATIENT
  Age: 44 Year
  Sex: Female

DRUGS (36)
  1. GRANULOCYTE COLONY STIMULATING [Suspect]
     Active Substance: GRANULOCYTE COLONY-STIMULATING FACTOR NOS
     Indication: PRODUCT USED FOR UNKNOWN INDICATION
     Dosage: 480 UG, QD
     Dates: start: 20180120, end: 20180124
  2. PERJETA [Suspect]
     Active Substance: PERTUZUMAB
     Indication: PRODUCT USED FOR UNKNOWN INDICATION
     Dosage: 420 MG, Q3W
     Dates: start: 20171206
  3. ACICLOVIR [Concomitant]
     Active Substance: ACYCLOVIR
     Route: 061
     Dates: end: 20171222
  4. FILGRASTIM [Concomitant]
     Active Substance: FILGRASTIM
     Route: 058
     Dates: start: 20180120, end: 20180124
  5. METOCLOPRAMIDE. [Concomitant]
     Active Substance: METOCLOPRAMIDE
     Route: 042
     Dates: start: 20171206, end: 20171206
  6. CAPECITABINE. [Concomitant]
     Active Substance: CAPECITABINE
     Indication: GASTRIC CANCER
     Dosage: 1000 MG
  7. CHLORHEXIDINE [Concomitant]
     Active Substance: CHLORHEXIDINE
     Indication: PROPHYLAXIS
     Dosage: 10 ML
     Dates: start: 20180611
  8. OMEPRAZOLE. [Concomitant]
     Active Substance: OMEPRAZOLE
     Indication: GASTROINTESTINAL DISORDER PROPHYLAXIS
     Route: 048
     Dates: start: 20191028
  9. ONDANSETRON [Concomitant]
     Active Substance: ONDANSETRON
     Route: 042
     Dates: start: 20180830, end: 20180830
  10. NASEPTIN [Concomitant]
     Active Substance: CHLORHEXIDINE HYDROCHLORIDE\NEOMYCIN SULFATE
     Route: 045
     Dates: start: 20171129, end: 20171222
  11. ZOPICLONE [Concomitant]
     Active Substance: ZOPICLONE
     Indication: SEDATION
     Route: 048
  12. RAMIPRIL. [Concomitant]
     Active Substance: RAMIPRIL
     Route: 048
  13. PERTUZUMAB. [Suspect]
     Active Substance: PERTUZUMAB
     Indication: BREAST CANCER METASTATIC
     Route: 042
     Dates: start: 20171107, end: 20171107
  14. PARACETAMOL [Concomitant]
     Active Substance: ACETAMINOPHEN
     Route: 042
     Dates: start: 20180830, end: 20180830
  15. CROMOGLICIC ACID [Concomitant]
     Active Substance: CROMOLYN
     Indication: EYE PAIN
     Route: 047
  16. SODIUM CHLORIDE. [Concomitant]
     Active Substance: SODIUM CHLORIDE
     Route: 042
     Dates: start: 20180830, end: 20180830
  17. LOPERAMIDE [Concomitant]
     Active Substance: LOPERAMIDE
     Indication: DIARRHOEA
     Dosage: 2 MILLIGRAM
     Route: 048
     Dates: start: 20180611
  18. FEMARA [Suspect]
     Active Substance: LETROZOLE
     Indication: BREAST CANCER METASTATIC
     Dosage: 20 MG, QD
     Route: 048
     Dates: start: 20180209, end: 20180608
  19. CHLORAMPHENICOL [Concomitant]
     Active Substance: CHLORAMPHENICOL
     Route: 047
     Dates: start: 20171129, end: 20171222
  20. FLUOROURACIL. [Concomitant]
     Active Substance: FLUOROURACIL
     Route: 042
     Dates: start: 20180925, end: 20181218
  21. LORAZEPAM. [Concomitant]
     Active Substance: LORAZEPAM
     Route: 048
  22. AMITRIPTYLINE [Concomitant]
     Active Substance: AMITRIPTYLINE
     Indication: NEUROPATHY PERIPHERAL
     Route: 048
     Dates: start: 20180316
  23. CODEINE [Concomitant]
     Active Substance: CODEINE
     Indication: ANALGESIC THERAPY
     Route: 048
  24. LAXIDO [Concomitant]
     Active Substance: POLYETHYLENE GLYCOL 3350\POTASSIUM CHLORIDE\SODIUM BICARBONATE\SODIUM CHLORIDE
     Route: 048
  25. LEVOMEPROMAZINE [Concomitant]
     Active Substance: LEVOMEPROMAZINE
     Route: 058
     Dates: start: 20191028
  26. DOCETAXEL. [Suspect]
     Active Substance: DOCETAXEL
     Indication: BREAST CANCER METASTATIC
     Route: 042
     Dates: start: 20171106, end: 20180209
  27. LETROZOLE. [Suspect]
     Active Substance: LETROZOLE
     Indication: BREAST CANCER METASTATIC
     Route: 048
     Dates: start: 20180209, end: 20180608
  28. TRASTUZUMAB. [Suspect]
     Active Substance: TRASTUZUMAB
     Indication: BREAST CANCER METASTATIC
     Route: 041
     Dates: start: 20171107, end: 20171107
  29. SENNA ALEXANDRINA [Concomitant]
     Active Substance: SENNA LEAF
     Route: 048
     Dates: start: 20190219
  30. CIPROFLOXACIN. [Concomitant]
     Active Substance: CIPROFLOXACIN
     Indication: INFECTION
     Route: 048
     Dates: start: 20191028, end: 20191031
  31. LANSOPRAZOLE. [Concomitant]
     Active Substance: LANSOPRAZOLE
     Indication: GASTRIC ULCER
     Route: 048
     Dates: start: 20180209
  32. OXALIPLATIN. [Concomitant]
     Active Substance: OXALIPLATIN
     Indication: GASTRIC CANCER
     Dosage: 250 MG
     Dates: start: 20180611, end: 20180731
  33. OXYCODONE/OXYCODONE HYDROCHLORIDE/OXYCODONE PECTINATE/OXYCODONE TEREPHTHALATE [Concomitant]
     Active Substance: OXYCODONE
     Dosage: 7.5 MG
     Route: 058
     Dates: start: 20191028
  34. CISPLATIN. [Concomitant]
     Active Substance: CISPLATIN
     Route: 042
     Dates: start: 20180731, end: 20181218
  35. DEXAMETHASONE. [Concomitant]
     Active Substance: DEXAMETHASONE
     Route: 048
     Dates: start: 20180118, end: 20180121
  36. FLUCLOXACILLIN [Concomitant]
     Active Substance: FLUCLOXACILLIN
     Route: 048
     Dates: start: 20190222, end: 20190301

REACTIONS (3)
  - Disease progression [Fatal]
  - Vomiting [Recovered/Resolved]
  - Diarrhoea [Recovered/Resolved]

NARRATIVE: CASE EVENT DATE: 20180830
